FAERS Safety Report 14527530 (Version 2)
Quarter: 2018Q1

REPORT INFORMATION
  Report Type: Report from Study
  Country: CA (occurrence: CA)
  Receive Date: 20180213
  Receipt Date: 20180226
  Transmission Date: 20180509
  Serious: Yes (Other)
  Sender: FDA-Public Use
  Company Number: CA-PFIZER INC-2018054467

PATIENT
  Age: 2 Year
  Sex: Male
  Weight: 12.6 kg

DRUGS (3)
  1. SEPTRA [Concomitant]
     Active Substance: SULFAMETHOXAZOLE\TRIMETHOPRIM
     Indication: ANTIFUNGAL PROPHYLAXIS
     Dosage: 16 MG (2ML), CYCLIC (TWICE A DAY ON 2 CONSECUTIVES DAYS PER WEEK)
     Route: 048
     Dates: start: 20160123
  2. CRIZOTINIB [Suspect]
     Active Substance: CRIZOTINIB
     Indication: NEUROBLASTOMA
     Dosage: 90 MG (3.6 ML), 2X/DAY
     Route: 048
     Dates: start: 20160613, end: 20180201
  3. RANITIDINE /00550802/ [Concomitant]
     Indication: GASTROOESOPHAGEAL REFLUX DISEASE
     Dosage: 15 MG, 2X/DAY
     Route: 048
     Dates: start: 20160123

REACTIONS (3)
  - Acute kidney injury [Recovered/Resolved]
  - Blood creatinine increased [Recovered/Resolved]
  - Blood urea increased [Recovered/Resolved]

NARRATIVE: CASE EVENT DATE: 20180201
